FAERS Safety Report 4534128-2 (Version None)
Quarter: 2004Q4

REPORT INFORMATION
  Report Type: 
  Country: None (occurrence: None)
  Receive Date: 20041221
  Receipt Date: 20041221
  Transmission Date: 20050328
  Serious: Yes (Hospitalization)
  Sender: FDA-Public Use
  Company Number: None

PATIENT
  Age: 43 Year
  Sex: Female
  Weight: 51.7101 kg

DRUGS (5)
  1. GEMZAR [Suspect]
     Indication: PANCREATIC CARCINOMA
     Dosage: 1125MG/M2 (IV) ON 3 WEEKS; OFF 1 WEEK
     Route: 048
     Dates: start: 20041207
  2. LEXAPRO [Concomitant]
  3. MORPHINE SUSTAINED RELEASE [Concomitant]
  4. COMPAZINE [Concomitant]
  5. ATIVAN [Concomitant]

REACTIONS (4)
  - ABDOMINAL PAIN [None]
  - NAUSEA [None]
  - PAIN [None]
  - PYREXIA [None]
